FAERS Safety Report 13443893 (Version 2)
Quarter: 2017Q3

REPORT INFORMATION
  Report Type: Spontaneous
  Country: US (occurrence: US)
  Receive Date: 20170414
  Receipt Date: 20170814
  Transmission Date: 20171127
  Serious: No
  Sender: FDA-Public Use
  Company Number: US-009507513-1704USA000319

PATIENT
  Sex: Female

DRUGS (1)
  1. EMEND [Suspect]
     Active Substance: APREPITANT
     Indication: NEOPLASM MALIGNANT
     Dosage: 5 ML (REPORTED AS ^5 CC^), UNK
     Route: 042

REACTIONS (5)
  - Hyperhidrosis [Unknown]
  - Back pain [Unknown]
  - Maternal exposure during pregnancy [Unknown]
  - Hot flush [Unknown]
  - Dyspnoea [Unknown]
